FAERS Safety Report 5714286-4 (Version None)
Quarter: 2008Q2

REPORT INFORMATION
  Report Type: 
  Country: None (occurrence: None)
  Receive Date: 20080423
  Receipt Date: 20080423
  Transmission Date: 20081010
  Serious: Yes (Death, Hospitalization, Other)
  Sender: FDA-Public Use
  Company Number: None

PATIENT
  Age: 37 Year
  Sex: Male
  Weight: 56.246 kg

DRUGS (1)
  1. HEPARIN [Suspect]
     Indication: WEIGHT DECREASED
     Dosage: 5 MG 1 DAY OTHER; 10 MG 1 DAY OTHER; END JULY TO MID OCT, 2007
     Route: 050
     Dates: start: 20070101

REACTIONS (6)
  - CONFUSIONAL STATE [None]
  - DIZZINESS [None]
  - DRUG INEFFECTIVE [None]
  - FATIGUE [None]
  - HEADACHE [None]
  - NAUSEA [None]
